FAERS Safety Report 8501914-3 (Version None)
Quarter: 2012Q3

REPORT INFORMATION
  Report Type: 
  Country: None (occurrence: None)
  Receive Date: 20120711
  Receipt Date: 20120709
  Transmission Date: 20120928
  Serious: Yes (Hospitalization)
  Sender: FDA-Public Use
  Company Number: PHHO2012HK010113

PATIENT
  Sex: Female
  Weight: 48.5 kg

DRUGS (3)
  1. PACLITAXEL [Suspect]
     Indication: GASTRIC CANCER
     Dosage: 175 MG/M2, QW3
     Route: 042
     Dates: start: 20120531, end: 20120621
  2. CARBOPLATIN [Suspect]
     Indication: GASTRIC CANCER
     Dosage: UNK MG, QD
     Dates: start: 20120531, end: 20120621
  3. EVEROLIMUS [Suspect]
     Indication: GASTRIC CANCER
     Dosage: 5 MG, QD
     Route: 048
     Dates: start: 20120531, end: 20120705

REACTIONS (1)
  - FEBRILE NEUTROPENIA [None]
